FAERS Safety Report 25040907 (Version 1)
Quarter: 2025Q1

REPORT INFORMATION
  Report Type: Report from Study
  Country: JP (occurrence: JP)
  Receive Date: 20250305
  Receipt Date: 20250305
  Transmission Date: 20250408
  Serious: Yes (Other)
  Sender: ALEXION PHARMACEUTICALS
  Company Number: JP-ASTRAZENECA-230063410_011820_P_1

PATIENT
  Age: 17 Year
  Weight: 49 kg

DRUGS (5)
  1. KOSELUGO [Suspect]
     Active Substance: SELUMETINIB
     Indication: Neurofibromatosis
     Dosage: 35 MILLIGRAM, BID
  2. KOSELUGO [Suspect]
     Active Substance: SELUMETINIB
     Dosage: 20 MILLIGRAM, QD (MOSTLY ON EMPTY STOMACH)
  3. KOSELUGO [Suspect]
     Active Substance: SELUMETINIB
     Dosage: 50 MILLIGRAM, QD (MOSTLY ON EMPTY STOMACH)
  4. KOSELUGO [Suspect]
     Active Substance: SELUMETINIB
     Dosage: 70 MILLIGRAM, QD (MOSTLY ON EMPTY STOMACH)
  5. KOSELUGO [Suspect]
     Active Substance: SELUMETINIB
     Dosage: 25 MILLIGRAM, BID

REACTIONS (3)
  - Loss of consciousness [Recovered/Resolved]
  - Nausea [Not Recovered/Not Resolved]
  - Acne [Not Recovered/Not Resolved]
